FAERS Safety Report 9885375 (Version 1)
Quarter: 2014Q1

REPORT INFORMATION
  Report Type: Spontaneous
  Country: US (occurrence: US)
  Receive Date: 20140210
  Receipt Date: 20140210
  Transmission Date: 20141002
  Serious: No
  Sender: FDA-Public Use
  Company Number: US-PFIZER INC-2014036661

PATIENT
  Sex: Female

DRUGS (4)
  1. METHOTREXATE SODIUM [Suspect]
     Indication: ARTHRITIS
     Dosage: UNK
  2. REMICADE [Suspect]
     Indication: ARTHRITIS
     Dosage: UNK
  3. HUMIRA [Suspect]
     Dosage: UNK
  4. ORENCIA [Suspect]
     Dosage: UNK

REACTIONS (2)
  - Alopecia [Unknown]
  - Visual impairment [Unknown]
